FAERS Safety Report 6073744-6 (Version None)
Quarter: 2009Q1

REPORT INFORMATION
  Report Type: 
  Country: None (occurrence: None)
  Receive Date: 20090209
  Receipt Date: 20090209
  Transmission Date: 20090719
  Serious: Yes (Other)
  Sender: FDA-Public Use
  Company Number: None

PATIENT
  Age: 33 Year
  Sex: Female

DRUGS (1)
  1. GABAPENTIN [Suspect]
     Indication: NEURALGIA

REACTIONS (2)
  - STOMATITIS [None]
  - TREATMENT FAILURE [None]
